FAERS Safety Report 6055786-X (Version None)
Quarter: 2009Q1

REPORT INFORMATION
  Report Type: 
  Country: None (occurrence: None)
  Receive Date: 20090128
  Receipt Date: 20090122
  Transmission Date: 20090719
  Serious: Yes (Other)
  Sender: FDA-Public Use
  Company Number: US-ABBOTT-08P-163-0480953-00

PATIENT
  Age: 53 Year
  Sex: Male
  Weight: 92.162 kg

DRUGS (8)
  1. HUMIRA [Suspect]
     Indication: GRANULOMA ANNULARE
     Route: 058
     Dates: start: 20071202, end: 20080701
  2. CORTICOSTEROIDS [Concomitant]
     Indication: GRANULOMA ANNULARE
  3. METHYLPREDNISOLONE [Concomitant]
     Indication: DRUG USE FOR UNKNOWN INDICATION
     Dates: start: 20040101
  4. ROSUVASTATIN [Concomitant]
     Indication: DRUG USE FOR UNKNOWN INDICATION
  5. IBUPROFEN TABLETS [Concomitant]
     Indication: DRUG USE FOR UNKNOWN INDICATION
  6. HYDROXYZINE [Concomitant]
     Indication: DRUG USE FOR UNKNOWN INDICATION
  7. GOBETATOL? [Concomitant]
     Indication: DRUG USE FOR UNKNOWN INDICATION
     Route: 061
  8. GABASESON? [Concomitant]
     Indication: DRUG USE FOR UNKNOWN INDICATION

REACTIONS (4)
  - ABDOMINAL DISTENSION [None]
  - CHRONIC LYMPHOCYTIC LEUKAEMIA [None]
  - SWELLING FACE [None]
  - WEIGHT INCREASED [None]
